FAERS Safety Report 4645603-4 (Version None)
Quarter: 2005Q2

REPORT INFORMATION
  Report Type: 
  Country: None (occurrence: None)
  Receive Date: 20050331
  Receipt Date: 20050110
  Transmission Date: 20051028
  Serious: Yes (Hospitalization)
  Sender: FDA-Public Use
  Company Number: 05P-163-0285899-00

PATIENT
  Age: 74 Year
  Sex: Female
  Weight: 94.8018 kg

DRUGS (3)
  1. HUMIRA [Suspect]
     Indication: RHEUMATOID ARTHRITIS
     Dosage: 40 MG, 1 IN 2 WK, SUBCUTANEOUS
     Route: 058
     Dates: start: 20041001
  2. OMEPRAZOLE [Concomitant]
  3. COUMADIN [Concomitant]

REACTIONS (5)
  - AMNESIA [None]
  - CHEST PAIN [None]
  - DIFFICULTY IN WALKING [None]
  - URINARY TRACT INFECTION [None]
  - VITAMIN B12 DECREASED [None]
